FAERS Safety Report 11803837 (Version 3)
Quarter: 2016Q1

REPORT INFORMATION
  Report Type: Report from Study
  Country: BR (occurrence: BR)
  Receive Date: 20151204
  Receipt Date: 20160114
  Transmission Date: 20160525
  Serious: Yes (Other)
  Sender: FDA-Public Use
  Company Number: PHHY2015BR156987

PATIENT
  Sex: Female
  Weight: 91 kg

DRUGS (1)
  1. DIOVAN HCT [Suspect]
     Active Substance: HYDROCHLOROTHIAZIDE\VALSARTAN
     Indication: HYPERTENSION
     Dosage: 1 DF (VALSARTAN 320 MG / HYDROCHLOROTHIAZIDE 12.5 MG ) QD (1 TABLET IN THE MORNING)
     Route: 048

REACTIONS (3)
  - Blood pressure increased [Unknown]
  - Headache [Unknown]
  - Myocardial infarction [Unknown]
